FAERS Safety Report 6424462-3 (Version None)
Quarter: 2009Q4

REPORT INFORMATION
  Report Type: 
  Country: None (occurrence: None)
  Receive Date: 20091103
  Receipt Date: 20091023
  Transmission Date: 20100525
  Serious: Yes (Death)
  Sender: FDA-Public Use
  Company Number: IR-BRISTOL-MYERS SQUIBB COMPANY-14830061

PATIENT
  Age: 49 Year
  Sex: Female

DRUGS (1)
  1. AMPHOTERICIN B [Suspect]
     Indication: CEREBRAL ASPERGILLOSIS

REACTIONS (1)
  - DRUG INEFFECTIVE [None]
